FAERS Safety Report 15653341 (Version 1)
Quarter: 2018Q4

REPORT INFORMATION
  Report Type: Spontaneous
  Country: US (occurrence: US)
  Receive Date: 20181124
  Receipt Date: 20181124
  Transmission Date: 20190205
  Serious: Yes (Life-Threatening, Hospitalization, Other)
  Sender: FDA-Public Use
  Company Number: US-TORRENT-00007213

PATIENT
  Age: 67 Year
  Sex: Male

DRUGS (5)
  1. ESCITALOPRAM [Interacting]
     Active Substance: ESCITALOPRAM OXALATE
     Indication: PRODUCT USED FOR UNKNOWN INDICATION
     Dosage: UNKNOWN
  2. CLONAZEPAM. [Suspect]
     Active Substance: CLONAZEPAM
     Indication: ANTIDEPRESSANT THERAPY
     Dosage: GIVEN AS NEEDED DOSES OF CLONAZEPAM
  3. PIPERACILLIN AND TAZOBACTAM [Concomitant]
     Active Substance: PIPERACILLIN SODIUM\TAZOBACTAM SODIUM
     Indication: STAPHYLOCOCCAL INFECTION
     Dosage: UNKNOWN
  4. LINEZOLID. [Interacting]
     Active Substance: LINEZOLID
     Indication: STAPHYLOCOCCAL INFECTION
     Dosage: UNKNOWN
  5. TRAZODONE [Suspect]
     Active Substance: TRAZODONE HYDROCHLORIDE
     Indication: ANTIDEPRESSANT THERAPY
     Dosage: NIGHTLY AT BEDTIME
     Route: 048

REACTIONS (4)
  - Drug interaction [Recovered/Resolved]
  - Anxiety [Recovered/Resolved]
  - Serotonin syndrome [Recovered/Resolved]
  - Toxicity to various agents [Recovered/Resolved]
